FAERS Safety Report 24970155 (Version 1)
Quarter: 2025Q1

REPORT INFORMATION
  Report Type: Spontaneous
  Country: US (occurrence: None)
  Receive Date: 20250213
  Receipt Date: 20250213
  Transmission Date: 20250409
  Serious: No
  Sender: FDA-CTU
  Company Number: None

PATIENT
  Sex: Female

DRUGS (2)
  1. RINVOQ [Suspect]
     Active Substance: UPADACITINIB
  2. RINVOQ [Concomitant]
     Active Substance: UPADACITINIB
     Dates: start: 20240927

REACTIONS (6)
  - Rash [None]
  - Weight increased [None]
  - Constipation [None]
  - Fatigue [None]
  - Drug ineffective [None]
  - Adverse drug reaction [None]
